FAERS Safety Report 8563576-9 (Version None)
Quarter: 2012Q3

REPORT INFORMATION
  Report Type: 
  Country: None (occurrence: None)
  Receive Date: 20120803
  Receipt Date: 20120725
  Transmission Date: 20120928
  Serious: Yes (Hospitalization)
  Sender: FDA-Public Use
  Company Number: US-009507513-1207USA012375

PATIENT

DRUGS (2)
  1. CLINORIL [Suspect]
     Indication: SYSTEMIC LUPUS ERYTHEMATOSUS
     Dosage: 200 MG, PRN
     Route: 048
     Dates: start: 20030101
  2. PLAQUENIL [Concomitant]
     Dosage: UNK

REACTIONS (5)
  - DYSPNOEA [None]
  - VISUAL IMPAIRMENT [None]
  - PAIN [None]
  - DRUG HYPERSENSITIVITY [None]
  - GENERALISED OEDEMA [None]
